FAERS Safety Report 9428563 (Version 1)
Quarter: 2013Q3

REPORT INFORMATION
  Report Type: Spontaneous
  Country: GB (occurrence: GB)
  Receive Date: 20130730
  Receipt Date: 20130730
  Transmission Date: 20140515
  Serious: Yes (Other)
  Sender: FDA-Public Use
  Company Number: GB-TEVA-413325ISR

PATIENT
  Age: 52 Year
  Sex: Female

DRUGS (2)
  1. CABERGOLINE [Suspect]
     Indication: PITUITARY ENLARGEMENT
     Route: 065
     Dates: start: 201301, end: 201305
  2. CABERGOLINE [Suspect]
     Indication: PITUITARY TUMOUR BENIGN

REACTIONS (3)
  - Blood prolactin increased [Recovered/Resolved]
  - Menstrual disorder [Recovered/Resolved]
  - Breast pain [Recovered/Resolved]
